FAERS Safety Report 21394259 (Version 2)
Quarter: 2022Q4

REPORT INFORMATION
  Report Type: Spontaneous
  Country: US (occurrence: US)
  Receive Date: 20220930
  Receipt Date: 20221102
  Transmission Date: 20230112
  Serious: Yes (Hospitalization, Other)
  Sender: FDA-Public Use
  Company Number: US-BIOVITRUM-2022US09059

PATIENT
  Age: 44 Year
  Sex: Female

DRUGS (2)
  1. KINERET [Suspect]
     Active Substance: ANAKINRA
     Indication: Fibromyalgia
     Dates: start: 202206
  2. KINERET [Suspect]
     Active Substance: ANAKINRA
     Dates: start: 20220701

REACTIONS (12)
  - Suicidal ideation [Unknown]
  - Infarction [Unknown]
  - Chest pain [Unknown]
  - Hypertension [Unknown]
  - Protein total decreased [Unknown]
  - Pain [Unknown]
  - Fibromyalgia [Unknown]
  - Condition aggravated [Unknown]
  - Fatigue [Unknown]
  - Somnolence [Unknown]
  - Product dose omission issue [Unknown]
  - Off label use [Not Recovered/Not Resolved]

NARRATIVE: CASE EVENT DATE: 20220601
